FAERS Safety Report 7405064-9 (Version None)
Quarter: 2011Q2

REPORT INFORMATION
  Report Type: 
  Country: None (occurrence: None)
  Receive Date: 20110411
  Receipt Date: 20110401
  Transmission Date: 20111010
  Serious: Yes (Other)
  Sender: FDA-Public Use
  Company Number: JP-ASTELLAS-2011JP002393

PATIENT
  Sex: Male
  Weight: 54 kg

DRUGS (22)
  1. TACROLIMUS [Suspect]
     Dosage: 2 MG, BID
     Route: 048
     Dates: start: 20100905, end: 20100906
  2. TACROLIMUS [Suspect]
     Dosage: 4.5 MG, BID
     Route: 048
     Dates: start: 20100918, end: 20100920
  3. CLARITHROMYCIN [Concomitant]
     Dosage: 200 MG, UNKNOWN/D
     Route: 048
     Dates: start: 20100908, end: 20101103
  4. ONON [Concomitant]
     Dosage: 450 MG, UNKNOWN/D
     Route: 048
     Dates: start: 20100910, end: 20101020
  5. CIPROFLOXACIN HCL [Suspect]
     Indication: ENTERITIS INFECTIOUS
     Dosage: 300 MG, UNKNOWN/D
     Route: 065
     Dates: start: 20100907, end: 20100909
  6. BIO THREE [Concomitant]
     Indication: COLITIS ULCERATIVE
     Dosage: 3 DF, UNKNOWN/D
     Route: 048
  7. TACROLIMUS [Suspect]
     Dosage: 5 MG, BID
     Route: 048
     Dates: start: 20100921, end: 20100927
  8. MUCODYNE [Concomitant]
     Dosage: 1500 MG, UNKNOWN/D
     Route: 048
     Dates: end: 20101201
  9. CRAVIT [Concomitant]
     Indication: ENTERITIS INFECTIOUS
     Dosage: 500 MG, UNKNOWN/D
     Route: 065
     Dates: start: 20100902, end: 20100906
  10. TACROLIMUS [Suspect]
     Dosage: 6 MG, BID
     Route: 048
     Dates: start: 20100916, end: 20100917
  11. TACROLIMUS [Suspect]
     Dosage: 2 MG, BID
     Route: 048
     Dates: start: 20101006
  12. ASACOL [Concomitant]
     Indication: COLITIS ULCERATIVE
     Dosage: 3600 MG, UNKNOWN/D
     Route: 048
     Dates: end: 20101228
  13. MUCOSTA [Concomitant]
     Dosage: 300 MG, UNKNOWN/D
     Route: 048
     Dates: end: 20101201
  14. VANCOMYCIN HYDROCHLORIDE [Concomitant]
     Dosage: 2000 MG, UNKNOWN/D
     Route: 048
     Dates: start: 20100906, end: 20100921
  15. ASACOL [Concomitant]
     Dosage: 3600 MG, UNKNOWN/D
     Route: 048
     Dates: start: 20110113
  16. PARIET [Concomitant]
     Dosage: 10 MG, UNKNOWN/D
     Route: 048
     Dates: end: 20100906
  17. TACROLIMUS [Suspect]
     Indication: COLITIS ULCERATIVE
     Dosage: 7.5 MG, BID
     Route: 048
     Dates: start: 20100912, end: 20100915
  18. TACROLIMUS [Suspect]
     Dosage: 4 MG, BID
     Route: 048
     Dates: start: 20100907, end: 20100911
  19. PREDONINE [Concomitant]
     Indication: COLITIS ULCERATIVE
     Dosage: 2.5 MG, UNKNOWN/D
     Route: 048
     Dates: end: 20100811
  20. VANCOMYCIN [Concomitant]
     Indication: INFECTION PROPHYLAXIS
     Dosage: UNK
     Route: 048
     Dates: start: 20100906, end: 20100906
  21. TACROLIMUS [Suspect]
     Dosage: 3.5 MG, BID
     Route: 048
     Dates: start: 20100928, end: 20101005
  22. SINGULAIR [Concomitant]
     Dosage: 10 MG, UNKNOWN/D
     Route: 065
     Dates: start: 20101119, end: 20101201

REACTIONS (6)
  - ALANINE AMINOTRANSFERASE INCREASED [None]
  - HYPOMAGNESAEMIA [None]
  - LIVER FUNCTION TEST ABNORMAL [None]
  - BLOOD CREATINE PHOSPHOKINASE INCREASED [None]
  - ASPARTATE AMINOTRANSFERASE INCREASED [None]
  - MUSCULAR DYSTROPHY [None]
